FAERS Safety Report 11328618 (Version 2)
Quarter: 2015Q3

REPORT INFORMATION
  Report Type: Spontaneous
  Country: US (occurrence: US)
  Receive Date: 20150731
  Receipt Date: 20150824
  Transmission Date: 20151125
  Serious: Yes (Hospitalization, Other)
  Sender: FDA-Public Use
  Company Number: US-009507513-1507USA014751

PATIENT
  Sex: Male
  Weight: 99.77 kg

DRUGS (4)
  1. VICTOZA [Suspect]
     Active Substance: LIRAGLUTIDE
     Indication: TYPE 2 DIABETES MELLITUS
     Dosage: 18 MG/3 ML BID
     Dates: start: 20100621, end: 20130415
  2. JANUVIA [Suspect]
     Active Substance: SITAGLIPTIN PHOSPHATE
     Indication: TYPE 2 DIABETES MELLITUS
     Dosage: 100 MG, DAILY
     Route: 048
     Dates: start: 20080324, end: 20091222
  3. BYETTA [Suspect]
     Active Substance: EXENATIDE
     Indication: TYPE 2 DIABETES MELLITUS
     Dosage: 10 MICROGRAMS BID
     Dates: start: 20070223, end: 20080324
  4. ASPIRIN. [Concomitant]
     Active Substance: ASPIRIN
     Dosage: UNK
     Dates: start: 2011

REACTIONS (38)
  - Intraductal papillary-mucinous carcinoma of pancreas [Recovering/Resolving]
  - Benign prostatic hyperplasia [Unknown]
  - Amblyopia [Unknown]
  - Cataract [Unknown]
  - Keratomileusis [Unknown]
  - Hepatic steatosis [Unknown]
  - Retinopexy [Unknown]
  - Intestinal adhesion lysis [Unknown]
  - Anaemia [Unknown]
  - Groin pain [Unknown]
  - Diabetic retinopathy [Unknown]
  - Arthritis [Unknown]
  - Cholecystectomy [Unknown]
  - Glaucoma [Unknown]
  - Haematuria [Unknown]
  - Umbilical hernia [Unknown]
  - Tendon operation [Unknown]
  - Urinary retention [Unknown]
  - Peritoneal adhesions [Unknown]
  - Hypercholesterolaemia [Unknown]
  - Neoplasm prostate [Recovered/Resolved]
  - Retinal detachment [Unknown]
  - Strabismus [Unknown]
  - Uveitis [Unknown]
  - Macular degeneration [Unknown]
  - Pancreatitis [Recovered/Resolved]
  - Hydrocele operation [Unknown]
  - Umbilical hernia repair [Unknown]
  - Cataract operation [Unknown]
  - Strabismus correction [Unknown]
  - Blood glucose increased [Unknown]
  - Deep vein thrombosis [Unknown]
  - Corneal transplant [Unknown]
  - Pancreaticoduodenectomy [Unknown]
  - Gastroenterostomy [Unknown]
  - Emotional distress [Unknown]
  - Diabetes mellitus inadequate control [Unknown]
  - Meniscus removal [Unknown]

NARRATIVE: CASE EVENT DATE: 20120116
